FAERS Safety Report 10975567 (Version 2)
Quarter: 2015Q2

REPORT INFORMATION
  Report Type: Spontaneous
  Country: US (occurrence: US)
  Receive Date: 20150401
  Receipt Date: 20150424
  Transmission Date: 20150821
  Serious: No
  Sender: FDA-Public Use
  Company Number: US-GLAXOSMITHKLINE-US2015GSK043231

PATIENT
  Sex: Male

DRUGS (1)
  1. TANZEUM [Suspect]
     Active Substance: ALBIGLUTIDE
     Indication: TYPE 2 DIABETES MELLITUS
     Dosage: 30 MG, UNK
     Route: 058

REACTIONS (5)
  - Injection site irritation [Recovering/Resolving]
  - Injection site swelling [Recovering/Resolving]
  - Injection site pruritus [Recovering/Resolving]
  - Injection site hypersensitivity [Recovering/Resolving]
  - Injection site erythema [Recovering/Resolving]
